FAERS Safety Report 21948737 (Version 1)
Quarter: 2023Q1

REPORT INFORMATION
  Report Type: Spontaneous
  Country: NL (occurrence: NL)
  Receive Date: 20230203
  Receipt Date: 20230203
  Transmission Date: 20230418
  Serious: Yes (Other)
  Sender: FDA-Public Use
  Company Number: NL-LRB-00862602

PATIENT
  Sex: Female
  Weight: 105 kg

DRUGS (3)
  1. SERTRALINE [Suspect]
     Active Substance: SERTRALINE HYDROCHLORIDE
     Indication: Anxiety
     Dosage: 2 KEERS 50MG
     Route: 065
     Dates: start: 20220502
  2. SERTRALINE [Suspect]
     Active Substance: SERTRALINE HYDROCHLORIDE
     Indication: Depression
  3. BIPERIDEEN TABLET 2MG / AKINETON TABLET 2MG [Concomitant]
     Indication: Product used for unknown indication
     Dosage: TABLET, 2 MILLIGRAM
     Route: 065

REACTIONS (5)
  - Parkinsonism [Recovering/Resolving]
  - Hunger [Not Recovered/Not Resolved]
  - Chills [Not Recovered/Not Resolved]
  - Restless legs syndrome [Not Recovered/Not Resolved]
  - Bruxism [Not Recovered/Not Resolved]
